FAERS Safety Report 4857717-4 (Version None)
Quarter: 2005Q4

REPORT INFORMATION
  Report Type: 
  Country: None (occurrence: None)
  Receive Date: 20051219
  Receipt Date: 20050608
  Transmission Date: 20060501
  Serious: No
  Sender: FDA-Public Use
  Company Number: US-GLAXOSMITHKLINE-A0562347A

PATIENT
  Sex: Female

DRUGS (1)
  1. NICODERM CQ [Suspect]

REACTIONS (5)
  - FEELING ABNORMAL [None]
  - ILL-DEFINED DISORDER [None]
  - MOVEMENT DISORDER [None]
  - NAUSEA [None]
  - NICOTINE DEPENDENCE [None]
